FAERS Safety Report 20016460 (Version 1)
Quarter: 2021Q4

REPORT INFORMATION
  Report Type: Spontaneous
  Country: US (occurrence: None)
  Receive Date: 20211104
  Receipt Date: 20211104
  Transmission Date: 20220303
  Serious: No
  Sender: FDA-Public Use
  Company Number: None

PATIENT
  Sex: Female

DRUGS (4)
  1. ENBREL [Suspect]
     Active Substance: ETANERCEPT
     Indication: Intra-uterine contraceptive device insertion
     Dosage: FREQUENCY : WEEKLY;?
     Route: 058
     Dates: start: 20210823
  2. ENBREL [Suspect]
     Active Substance: ETANERCEPT
     Indication: Migraine without aura
  3. ENBREL [Suspect]
     Active Substance: ETANERCEPT
     Indication: Rheumatoid arthritis
  4. ENBREL [Suspect]
     Active Substance: ETANERCEPT
     Indication: Drug therapy

REACTIONS (1)
  - Drug ineffective [None]
